FAERS Safety Report 5857880-2 (Version None)
Quarter: 2008Q3

REPORT INFORMATION
  Report Type: 
  Country: None (occurrence: None)
  Receive Date: 20080826
  Receipt Date: 20080509
  Transmission Date: 20090109
  Serious: No
  Sender: FDA-Public Use
  Company Number: US-TEVA-171419USA

PATIENT
  Age: 74 Year
  Sex: Female

DRUGS (9)
  1. AZILECT [Suspect]
     Indication: PARKINSON'S DISEASE
     Route: 048
     Dates: start: 20080502
  2. LISINOPRIL [Concomitant]
  3. SIMVASTATIN [Concomitant]
  4. GEMFIBROZIL [Concomitant]
  5. ISOSORBIDE MONONITRATE [Concomitant]
  6. LANTUS [Concomitant]
  7. HYDROCHLOROTHIAZIDE [Concomitant]
  8. POTASSIUM CHLORIDE [Concomitant]
  9. ESCITALOPRAM OXALATE [Concomitant]

REACTIONS (2)
  - FEELING COLD [None]
  - INSOMNIA [None]
